FAERS Safety Report 8376403-X (Version None)
Quarter: 2012Q2

REPORT INFORMATION
  Report Type: 
  Country: None (occurrence: None)
  Receive Date: 20120522
  Receipt Date: 20120517
  Transmission Date: 20120825
  Serious: Yes (Other)
  Sender: FDA-Public Use
  Company Number: PHHY2012CA042861

PATIENT
  Sex: Female

DRUGS (1)
  1. ZOLEDRONOC ACID [Suspect]
     Dosage: UNK UKN, UNK
     Route: 042
     Dates: start: 20110729

REACTIONS (5)
  - TACHYCARDIA [None]
  - PYREXIA [None]
  - CHEST PAIN [None]
  - DYSPNOEA [None]
  - DELIRIUM [None]
